FAERS Safety Report 11811755 (Version 3)
Quarter: 2016Q3

REPORT INFORMATION
  Report Type: Spontaneous
  Country: US (occurrence: US)
  Receive Date: 20151208
  Receipt Date: 20160708
  Transmission Date: 20161109
  Serious: No
  Sender: FDA-Public Use
  Company Number: US-DSJP-DSU-2015-127771

PATIENT
  Sex: Female
  Weight: 95.24 kg

DRUGS (1)
  1. BENICAR HCT [Suspect]
     Active Substance: HYDROCHLOROTHIAZIDE\OLMESARTAN MEDOXOMIL
     Indication: HYPERTENSION
     Dosage: 40MG/12.5MG
     Dates: start: 200908, end: 201009

REACTIONS (2)
  - Malabsorption [Recovered/Resolved]
  - Alopecia [Recovered/Resolved]
